FAERS Safety Report 15585808 (Version 1)
Quarter: 2018Q4

REPORT INFORMATION
  Report Type: Spontaneous
  Country: FR (occurrence: FR)
  Receive Date: 20181105
  Receipt Date: 20181105
  Transmission Date: 20190205
  Serious: Yes (Other)
  Sender: FDA-Public Use
  Company Number: FR-BAYER-2018-200036

PATIENT
  Age: 82 Year
  Sex: Female

DRUGS (2)
  1. STIVARGA [Suspect]
     Active Substance: REGORAFENIB
     Indication: HEPATIC CANCER METASTATIC
     Dosage: 80 MG, QD
     Dates: start: 2018
  2. NEXAVAR [Suspect]
     Active Substance: SORAFENIB
     Indication: HEPATIC CANCER METASTATIC
     Dosage: 400 MG, QD
     Dates: start: 2017

REACTIONS (3)
  - Hepatocellular carcinoma [None]
  - Off label use [None]
  - Palmar-plantar erythrodysaesthesia syndrome [None]
